FAERS Safety Report 18358031 (Version 1)
Quarter: 2020Q4

REPORT INFORMATION
  Report Type: Report from Study
  Country: DZ (occurrence: DZ)
  Receive Date: 20201008
  Receipt Date: 20201008
  Transmission Date: 20210114
  Serious: Yes (Hospitalization, Other)
  Sender: FDA-Public Use
  Company Number: DZ-VISTAPHARM, INC.-VER202009-001664

PATIENT
  Age: 20 Year
  Sex: Female

DRUGS (2)
  1. HALOPERIDOL. [Suspect]
     Active Substance: HALOPERIDOL
     Indication: PRODUCT USED FOR UNKNOWN INDICATION
     Dosage: UNKNOWN
  2. HYDROCODONE AND ACETAMINOPHEN [Suspect]
     Active Substance: ACETAMINOPHEN\HYDROCODONE
     Indication: PRODUCT USED FOR UNKNOWN INDICATION
     Dosage: UNKNOWN

REACTIONS (11)
  - Tachypnoea [Unknown]
  - Deafness [Unknown]
  - Drug-induced liver injury [Unknown]
  - Mydriasis [Unknown]
  - Poisoning deliberate [Unknown]
  - Agitation [Unknown]
  - Seizure [Unknown]
  - Exposure during pregnancy [Unknown]
  - Vision blurred [Unknown]
  - Haemorrhage [Unknown]
  - Polyuria [Unknown]
